FAERS Safety Report 16890114 (Version 1)
Quarter: 2019Q4

REPORT INFORMATION
  Report Type: Spontaneous
  Country: US (occurrence: US)
  Receive Date: 20191004
  Receipt Date: 20191004
  Transmission Date: 20200122
  Serious: No
  Sender: FDA-Public Use
  Company Number: None

PATIENT
  Age: 18 Year
  Sex: Female
  Weight: 65.25 kg

DRUGS (1)
  1. DOXYCYCLINE HUCKSTER 100 MG TAB [Suspect]
     Active Substance: DOXYCYCLINE
     Indication: ACNE
     Dosage: ?          QUANTITY:1 TABLET(S);?
     Route: 048
     Dates: start: 20190709, end: 20190819

REACTIONS (5)
  - Skin exfoliation [None]
  - Burning sensation [None]
  - Fatigue [None]
  - Malaise [None]
  - Nail avulsion [None]

NARRATIVE: CASE EVENT DATE: 20190819
